FAERS Safety Report 8756226 (Version 2)
Quarter: 2012Q4

REPORT INFORMATION
  Report Type: Report from Study
  Country: JP (occurrence: JP)
  Receive Date: 20120828
  Receipt Date: 20120905
  Transmission Date: 20130627
  Serious: Yes (Hospitalization)
  Sender: FDA-Public Use
  Company Number: PHHY2012JP073622

PATIENT
  Age: 52 Year
  Sex: Male

DRUGS (4)
  1. AFINITOR [Suspect]
     Indication: PANCREATIC NEUROENDOCRINE TUMOUR
     Dosage: 10 mg, DAILY
     Route: 048
     Dates: start: 20120523, end: 201207
  2. AFINITOR [Suspect]
     Dosage: 10 mg, Daily
     Route: 048
     Dates: start: 20120731, end: 20120823
  3. SANDOSTATIN LAR [Suspect]
     Indication: PANCREATIC NEUROENDOCRINE TUMOUR
     Dosage: 20 mg, UNK
     Route: 030
     Dates: start: 20120731
  4. SANDOSTATINE [Concomitant]
     Indication: DIARRHOEA
     Route: 058
     Dates: start: 201207

REACTIONS (3)
  - Blood potassium decreased [Recovered/Resolved]
  - Diarrhoea [Recovered/Resolved]
  - Hypocalcaemia [Not Recovered/Not Resolved]
